FAERS Safety Report 5511929-5 (Version None)
Quarter: 2007Q4

REPORT INFORMATION
  Report Type: 
  Country: None (occurrence: None)
  Receive Date: 20071109
  Receipt Date: 20071030
  Transmission Date: 20080405
  Serious: Yes (Other)
  Sender: FDA-Public Use
  Company Number: US-PFIZER INC-2007092259

PATIENT
  Sex: Female

DRUGS (2)
  1. VFEND [Suspect]
  2. STEROID ANTIBACTERIALS [Interacting]
     Indication: LUNG TRANSPLANT

REACTIONS (2)
  - CUSHINGOID [None]
  - DRUG INTERACTION [None]
